FAERS Safety Report 5854320-4 (Version None)
Quarter: 2008Q3

REPORT INFORMATION
  Report Type: 
  Country: None (occurrence: None)
  Receive Date: 20080822
  Receipt Date: 20080819
  Transmission Date: 20090109
  Serious: Yes (Hospitalization)
  Sender: FDA-Public Use
  Company Number: US-PFIZER INC-2007030849

PATIENT
  Sex: Male
  Weight: 52 kg

DRUGS (5)
  1. SUTENT [Suspect]
     Indication: GASTROINTESTINAL STROMAL TUMOUR
     Route: 048
  2. CLONIDINE [Concomitant]
     Route: 048
     Dates: start: 20060509
  3. ALTACE [Concomitant]
     Route: 048
     Dates: start: 20060328
  4. LABETALOL HCL [Concomitant]
     Route: 048
     Dates: start: 20060328
  5. HYDROCHLOROTHIAZIDE [Concomitant]
     Route: 048
     Dates: start: 20051122

REACTIONS (2)
  - CHEST PAIN [None]
  - HYPERTENSION [None]
